FAERS Safety Report 7578129-9 (Version None)
Quarter: 2011Q2

REPORT INFORMATION
  Report Type: 
  Country: None (occurrence: None)
  Receive Date: 20110628
  Receipt Date: 20110607
  Transmission Date: 20111010
  Serious: Yes (Hospitalization)
  Sender: FDA-Public Use
  Company Number: A0870501A

PATIENT
  Age: 59 Year
  Sex: Male
  Weight: 112.3 kg

DRUGS (3)
  1. AVANDIA [Suspect]
     Dosage: 4MG PER DAY
     Route: 048
     Dates: start: 20020201
  2. ADALAT [Concomitant]
  3. GLYNASE [Concomitant]

REACTIONS (2)
  - MYOCARDIAL INFARCTION [None]
  - CONVULSION [None]
